FAERS Safety Report 6346312-6 (Version None)
Quarter: 2009Q3

REPORT INFORMATION
  Report Type: 
  Country: None (occurrence: None)
  Receive Date: 20090909
  Receipt Date: 20090825
  Transmission Date: 20100115
  Serious: Yes (Other)
  Sender: FDA-Public Use
  Company Number: TW-PFIZER INC-2009260777

PATIENT
  Age: 43 Year

DRUGS (3)
  1. VARENICLINE TARTRATE [Suspect]
     Indication: SMOKING CESSATION THERAPY
  2. CLOTIAPINE [Concomitant]
     Dosage: 160 MG, DAILY
  3. LITHIUM [Concomitant]
     Dosage: 1200 MG, DAILY

REACTIONS (3)
  - MANIA [None]
  - NAUSEA [None]
  - PSYCHOTIC DISORDER [None]
